FAERS Safety Report 8623945-5 (Version None)
Quarter: 2012Q3

REPORT INFORMATION
  Report Type: 
  Country: None (occurrence: None)
  Receive Date: 20120827
  Receipt Date: 20120822
  Transmission Date: 20120928
  Serious: Yes (Other)
  Sender: FDA-Public Use
  Company Number: PHEH2012US016607

PATIENT
  Sex: Male
  Weight: 90.703 kg

DRUGS (1)
  1. GILENYA [Suspect]
     Indication: MULTIPLE SCLEROSIS
     Dosage: 0.5 MG, QD
     Route: 048
     Dates: start: 20120726

REACTIONS (6)
  - BLINDNESS [None]
  - VISION BLURRED [None]
  - FATIGUE [None]
  - OPTIC NEURITIS [None]
  - EYE PAIN [None]
  - EYE MOVEMENT DISORDER [None]
